FAERS Safety Report 9621018 (Version 3)
Quarter: 2013Q4

REPORT INFORMATION
  Report Type: Report from Study
  Country: US (occurrence: US)
  Receive Date: 20131015
  Receipt Date: 20131107
  Transmission Date: 20140711
  Serious: Yes (Other)
  Sender: FDA-Public Use
  Company Number: US-BAYER-2013-097809

PATIENT
  Age: 76 Year
  Sex: Male

DRUGS (2)
  1. STIVARGA [Suspect]
     Indication: COLON CANCER
     Dosage: 120MG QD (40MG, 3 TABLETS DAILY)
     Route: 048
     Dates: start: 20130808, end: 20131029
  2. STIVARGA [Suspect]
     Indication: LUNG NEOPLASM MALIGNANT
     Dosage: 160 MG, QD
     Route: 048
     Dates: start: 201309, end: 20131029

REACTIONS (3)
  - Dizziness [Recovered/Resolved]
  - Off label use [None]
  - Hallucinations, mixed [Not Recovered/Not Resolved]
